FAERS Safety Report 5170618-X (Version None)
Quarter: 2006Q4

REPORT INFORMATION
  Report Type: 
  Country: None (occurrence: None)
  Receive Date: 20061205
  Receipt Date: 20061120
  Transmission Date: 20070319
  Serious: Yes (Other)
  Sender: FDA-Public Use
  Company Number: 2006145355

PATIENT
  Age: 78 Year
  Sex: Male

DRUGS (1)
  1. CAVERJECT [Suspect]
     Dosage: INTRAVENOUS
     Route: 042

REACTIONS (3)
  - INJECTION SITE PAIN [None]
  - URINARY BLADDER HAEMORRHAGE [None]
  - WRONG TECHNIQUE IN DRUG USAGE PROCESS [None]
